FAERS Safety Report 7549263-4 (Version None)
Quarter: 2011Q2

REPORT INFORMATION
  Report Type: 
  Country: None (occurrence: None)
  Receive Date: 20110615
  Receipt Date: 20110610
  Transmission Date: 20111010
  Serious: Yes (Life-Threatening, Other)
  Sender: FDA-Public Use
  Company Number: PHHY2011BR51519

PATIENT
  Sex: Female

DRUGS (9)
  1. ARPADOL [Concomitant]
     Indication: OSTEOPOROSIS
     Dosage: 1 DF A DAY
     Route: 048
  2. DIOVAN HCT [Suspect]
     Dosage: 1 DF (320 MG OF VALS AND 12.5 MG OF HYDR) DAILY
     Route: 048
  3. METFORMIN HCL [Concomitant]
     Indication: TYPE 2 DIABETES MELLITUS
     Dosage: 1 DFDAILY
     Route: 048
  4. METHYLDOPA [Concomitant]
     Indication: HYPERTENSION
     Dosage: 2 DF A DAY
     Route: 048
  5. INSULIN RAPID [Concomitant]
     Indication: TYPE 2 DIABETES MELLITUS
     Dosage: 10 IU, TID
     Route: 058
  6. FIXA-CAL [Concomitant]
     Indication: OSTEOPOROSIS
     Dosage: 1 DF DAILY
     Route: 048
  7. HUMULIN R [Concomitant]
     Indication: TYPE 2 DIABETES MELLITUS
     Dosage: 30 IU, TID
     Route: 058
  8. DIOVAN HCT [Suspect]
     Indication: HYPERTENSION
     Dosage: 1 DF (320 MG OF VALS AND 25 MG OF HYDR) DAILY
     Route: 048
  9. FORMOTEROL W/BUDESONIDE [Concomitant]
     Indication: ASTHMA
     Dosage: UNK

REACTIONS (3)
  - BLOOD PRESSURE INCREASED [None]
  - BLOOD GLUCOSE FLUCTUATION [None]
  - HEADACHE [None]
